FAERS Safety Report 7515886-1 (Version None)
Quarter: 2011Q2

REPORT INFORMATION
  Report Type: 
  Country: None (occurrence: None)
  Receive Date: 20110601
  Receipt Date: 20110527
  Transmission Date: 20111010
  Serious: No
  Sender: FDA-Public Use
  Company Number: US-PFIZER INC-2011115546

PATIENT
  Sex: Male
  Weight: 124.7 kg

DRUGS (5)
  1. LIPITOR [Suspect]
     Indication: BLOOD CHOLESTEROL INCREASED
     Dosage: 20 MG, DAILY
     Route: 048
     Dates: start: 20000101
  2. ZESTRIL [Concomitant]
     Dosage: UNK
  3. GLUCOVANCE [Concomitant]
     Dosage: UNK
  4. DILANTIN [Concomitant]
     Dosage: UNK
  5. ZANTAC [Concomitant]
     Dosage: UNK

REACTIONS (2)
  - BLOOD GLUCOSE INCREASED [None]
  - BLOOD CHOLESTEROL INCREASED [None]
